FAERS Safety Report 9868784 (Version 1)
Quarter: 2014Q1

REPORT INFORMATION
  Report Type: Spontaneous
  Country: US (occurrence: US)
  Receive Date: 20140204
  Receipt Date: 20140204
  Transmission Date: 20141002
  Serious: Yes (Hospitalization)
  Sender: FDA-Public Use
  Company Number: US-ABBVIE-14P-163-1196195-00

PATIENT
  Age: 46 Year
  Sex: Male

DRUGS (3)
  1. ANDROGEL [Suspect]
     Indication: BLOOD TESTOSTERONE DECREASED
     Dosage: UNKNOWN DOSE
     Dates: end: 201401
  2. AMOXICILLIN [Suspect]
     Indication: SINUS CONGESTION
     Dates: start: 201312, end: 201312
  3. CIPRO [Suspect]
     Indication: SINUS CONGESTION
     Dates: start: 201312, end: 201312

REACTIONS (2)
  - Bronchopneumonia [Recovered/Resolved]
  - Drug ineffective [Unknown]
